FAERS Safety Report 4835919-0 (Version None)
Quarter: 2005Q4

REPORT INFORMATION
  Report Type: 
  Country: None (occurrence: None)
  Receive Date: 20051118
  Receipt Date: 20051108
  Transmission Date: 20060501
  Serious: Yes (Death, Hospitalization, Other)
  Sender: FDA-Public Use
  Company Number: 2005149678

PATIENT
  Age: 98 Year
  Sex: Female
  Weight: 44.4525 kg

DRUGS (4)
  1. NORVASC [Suspect]
     Indication: CARDIAC PACEMAKER INSERTION
     Dosage: SEE IMAGE
     Route: 048
     Dates: start: 20040801, end: 20040817
  2. NORVASC [Suspect]
     Indication: CARDIAC PACEMAKER INSERTION
     Dosage: SEE IMAGE
     Route: 048
     Dates: start: 20040501
  3. NORVASC [Suspect]
     Indication: CARDIAC PACEMAKER INSERTION
     Dosage: SEE IMAGE
     Route: 048
     Dates: start: 20040818
  4. VASOTEC [Concomitant]

REACTIONS (11)
  - BLOOD CREATININE ABNORMAL [None]
  - BLOOD PRESSURE FLUCTUATION [None]
  - CARDIAC FAILURE CONGESTIVE [None]
  - DEPRESSED LEVEL OF CONSCIOUSNESS [None]
  - DRUG DISPENSING ERROR [None]
  - DYSPHAGIA [None]
  - HAEMOGLOBIN DECREASED [None]
  - INCORRECT DOSE ADMINISTERED [None]
  - JOINT SWELLING [None]
  - OEDEMA [None]
  - PROTEIN TOTAL ABNORMAL [None]
